FAERS Safety Report 21308060 (Version 1)
Quarter: 2022Q3

REPORT INFORMATION
  Report Type: Spontaneous
  Country: CN (occurrence: CN)
  Receive Date: 20220908
  Receipt Date: 20220908
  Transmission Date: 20221027
  Serious: Yes (Death, Other)
  Sender: FDA-Public Use
  Company Number: CN-STRIDES ARCOLAB LIMITED-2022SP011307

PATIENT
  Sex: Female

DRUGS (9)
  1. ETOPOSIDE [Suspect]
     Active Substance: ETOPOSIDE
     Indication: Anaplastic large-cell lymphoma
     Dosage: UNK (TWO CYCLES OF ECHOP CHEMOTHERAPY  )
     Route: 065
     Dates: start: 2015
  2. PREDNISOLONE [Suspect]
     Active Substance: PREDNISOLONE
     Indication: Anaplastic large-cell lymphoma
     Dosage: UNK (PREDNISOLONE ACETATE  )
     Route: 065
     Dates: start: 2011, end: 2015
  3. PREDNISOLONE [Suspect]
     Active Substance: PREDNISOLONE
     Dosage: UNK(ALONG WITH THALIDOMIDE)
     Route: 065
     Dates: start: 2011
  4. PREDNISOLONE [Suspect]
     Active Substance: PREDNISOLONE
     Dosage: UNK (THERAPY WAS TAPERED GRADUALLY)
     Route: 065
     Dates: start: 201305
  5. PREDNISOLONE [Suspect]
     Active Substance: PREDNISOLONE
     Dosage: UNK, CYCLICAL (TWO CYCLES OF ECHOP CHEMOTHERAPY   )
     Route: 065
     Dates: start: 2015
  6. CYCLOPHOSPHAMIDE [Suspect]
     Active Substance: CYCLOPHOSPHAMIDE
     Indication: Anaplastic large-cell lymphoma
     Dosage: UNK
     Route: 065
     Dates: start: 2012
  7. CYCLOPHOSPHAMIDE [Suspect]
     Active Substance: CYCLOPHOSPHAMIDE
     Dosage: UNK (TWO CYCLES OF ECHOP CHEMOTHERAPY)
     Route: 065
     Dates: start: 2015
  8. DOXORUBICIN [Suspect]
     Active Substance: DOXORUBICIN
     Indication: Anaplastic large-cell lymphoma
     Dosage: UNK (TWO CYCLES OF ECHOP CHEMOTHERAPY)
     Route: 065
     Dates: start: 2015
  9. VINCRISTINE [Suspect]
     Active Substance: VINCRISTINE
     Indication: Anaplastic large-cell lymphoma
     Dosage: UNK (TWO CYCLES OF ECHOP CHEMOTHERAPY)
     Route: 065
     Dates: start: 2015

REACTIONS (3)
  - Drug ineffective [Fatal]
  - Infection [Fatal]
  - Off label use [Unknown]
